FAERS Safety Report 8571622-1 (Version None)
Quarter: 2012Q3

REPORT INFORMATION
  Report Type: 
  Country: None (occurrence: None)
  Receive Date: 20120806
  Receipt Date: 20120801
  Transmission Date: 20120928
  Serious: Yes (Hospitalization, Other)
  Sender: FDA-Public Use
  Company Number: PHEH2007US13320

PATIENT
  Sex: Female

DRUGS (36)
  1. CYTOXAN [Concomitant]
  2. ASPIRIN [Concomitant]
  3. PREDNISONE [Concomitant]
     Dates: start: 20011001
  4. HEPATITIS B VACCINE [Concomitant]
  5. AREDIA [Suspect]
     Indication: MULTIPLE MYELOMA
     Dosage: 90 MG, QMO OVER 4 HRS
     Dates: start: 20011001, end: 20020101
  6. AREDIA [Suspect]
     Dates: start: 20080707
  7. ACTOS [Suspect]
     Indication: DIABETES MELLITUS
     Dosage: 30 MG, QHS
  8. DEXAMETHASONE [Suspect]
  9. VELCADE [Concomitant]
  10. PROCRIT                            /00909301/ [Concomitant]
  11. CYCLOPHOSPHAMIDE [Concomitant]
  12. ALKERAN [Concomitant]
     Dates: start: 20011010
  13. VACCINE /PERTUSSIS/TETANUS/DIPHTHERIA/ ^CNG^ [Concomitant]
  14. PNEUMOVAX 23 [Concomitant]
  15. ENALAPRIL MALEATE [Concomitant]
  16. NORVASC [Concomitant]
  17. REVLIMID [Concomitant]
  18. DECADRON PHOSPHATE [Concomitant]
  19. CHEMOTHERAPEUTICS NOS [Concomitant]
  20. VINCRISTINE + ADRIAMYCIN + DEXAMETHASONE [Concomitant]
     Dates: start: 20020521
  21. PENTAMIDINE [Concomitant]
  22. POTASSIUM CHLORIDE [Concomitant]
     Dosage: 20 MEQ, BID
  23. THALIDOMIDE [Concomitant]
  24. POLIO-VACCINE [Concomitant]
  25. MELPHALAN HYDROCHLORIDE [Concomitant]
  26. FORTAMET [Concomitant]
  27. CRESTOR [Concomitant]
  28. MAGNESIUM OXIDE [Concomitant]
     Dosage: 400 MG, BID
  29. XANAX [Concomitant]
     Dosage: 0.5 MG, QD
  30. BENADRYL [Concomitant]
  31. ZOMETA [Suspect]
     Indication: MULTIPLE MYELOMA
     Dosage: 4 MG, Q2MO INFUSION OVER 25 MINS EVERY OTHER MONTH
     Dates: end: 20050721
  32. DOXIL [Concomitant]
  33. AVALIDE [Concomitant]
     Dosage: 12.5 MG, QD
  34. INFLUENZA VACCINE [Concomitant]
  35. AUGMENTIN '125' [Concomitant]
  36. METFORMIN HYDROCHLORIDE [Concomitant]

REACTIONS (88)
  - HIP FRACTURE [None]
  - INFECTION [None]
  - GOITRE [None]
  - THYROID MASS [None]
  - METASTATIC LYMPHOMA [None]
  - AORTIC ARTERIOSCLEROSIS [None]
  - ANAEMIA [None]
  - GAIT DISTURBANCE [None]
  - URINARY TRACT INFECTION [None]
  - DYSPNOEA [None]
  - DEPRESSION [None]
  - SUICIDAL IDEATION [None]
  - IMPAIRED HEALING [None]
  - MAMMARY DUCT ECTASIA [None]
  - SYNCOPE [None]
  - RENAL FAILURE ACUTE [None]
  - ARTHRALGIA [None]
  - HERPES ZOSTER [None]
  - GASTRIC ULCER [None]
  - DIVERTICULUM [None]
  - HYPOMAGNESAEMIA [None]
  - NERVOUSNESS [None]
  - WEIGHT DECREASED [None]
  - RADICULOPATHY [None]
  - PANCYTOPENIA [None]
  - CHEST DISCOMFORT [None]
  - FATIGUE [None]
  - FALL [None]
  - NERVOUS SYSTEM DISORDER [None]
  - OESOPHAGEAL RUPTURE [None]
  - OSTEONECROSIS OF JAW [None]
  - BONE LESION [None]
  - TOXIC NODULAR GOITRE [None]
  - FIBROUS DYSPLASIA OF BONE [None]
  - BRONCHITIS [None]
  - MITRAL VALVE INCOMPETENCE [None]
  - NEUROPATHY PERIPHERAL [None]
  - MALAISE [None]
  - HYPOAESTHESIA [None]
  - LEUKOPENIA [None]
  - SINUSITIS [None]
  - SINUS TACHYCARDIA [None]
  - HAEMATEMESIS [None]
  - DECREASED APPETITE [None]
  - LOWER LIMB FRACTURE [None]
  - UTERINE LEIOMYOMA [None]
  - VITAMIN D DEFICIENCY [None]
  - RIB FRACTURE [None]
  - LEFT VENTRICULAR HYPERTROPHY [None]
  - AORTIC VALVE INCOMPETENCE [None]
  - DYSAESTHESIA [None]
  - NASAL CONGESTION [None]
  - SEPSIS [None]
  - SWELLING [None]
  - INTRADUCTAL PAPILLOMA OF BREAST [None]
  - BREAST DISCHARGE [None]
  - STREPTOCOCCUS TEST POSITIVE [None]
  - DYSLIPIDAEMIA [None]
  - HYPERPARATHYROIDISM [None]
  - PSYCHOTIC DISORDER [None]
  - THROMBOCYTOPENIA [None]
  - MUSCULOSKELETAL PAIN [None]
  - STOMATITIS [None]
  - CHEST PAIN [None]
  - PNEUMONIA [None]
  - PAIN [None]
  - DEFORMITY [None]
  - DIABETES MELLITUS [None]
  - OSTEOARTHRITIS [None]
  - BREAST HYPERPLASIA [None]
  - TRICUSPID VALVE INCOMPETENCE [None]
  - PULMONARY VALVE INCOMPETENCE [None]
  - PAIN IN EXTREMITY [None]
  - WEIGHT INCREASED [None]
  - OSTEOPOROSIS [None]
  - INSOMNIA [None]
  - MICROALBUMINURIA [None]
  - HYPERCALCAEMIA [None]
  - NEOPLASM MALIGNANT [None]
  - BREAST CANCER [None]
  - FOLLICULITIS [None]
  - CONVULSION [None]
  - NEUTROPENIA [None]
  - PERINEURIAL CYST [None]
  - WALKING AID USER [None]
  - NEUTROPHIL COUNT DECREASED [None]
  - RESPIRATORY TRACT INFECTION [None]
  - POLYP [None]
